FAERS Safety Report 7823354-2 (Version None)
Quarter: 2011Q3

REPORT INFORMATION
  Report Type: 
  Country: None (occurrence: None)
  Receive Date: 20110901
  Receipt Date: 20110228
  Transmission Date: 20111222
  Serious: Yes (Other)
  Sender: FDA-Public Use
  Company Number: 269528USA

PATIENT
  Sex: Male

DRUGS (2)
  1. METOCLOPRAMIDE [Suspect]
     Dosage: 10 MG
  2. METOCLOPRAMIDE [Suspect]
     Dosage: (10 MG)

REACTIONS (4)
  - TREMOR [None]
  - DYSKINESIA [None]
  - MYOCLONUS [None]
  - RESTLESS LEGS SYNDROME [None]
